FAERS Safety Report 7424211-6 (Version None)
Quarter: 2011Q2

REPORT INFORMATION
  Report Type: 
  Country: None (occurrence: None)
  Receive Date: 20110419
  Receipt Date: 20110412
  Transmission Date: 20111010
  Serious: Yes (Other)
  Sender: FDA-Public Use
  Company Number: BR-ROCHE-493657

PATIENT
  Sex: Female
  Weight: 59 kg

DRUGS (3)
  1. TIBOLONA [Concomitant]
  2. BONIVA [Suspect]
     Indication: OSTEOPENIA
     Dosage: FREQUENCY: ONCE A MONTH, IN THE MORNING.
     Route: 048
     Dates: start: 20070201
  3. OMEPRAZOLE [Concomitant]

REACTIONS (6)
  - SPINAL FRACTURE [None]
  - ROAD TRAFFIC ACCIDENT [None]
  - ABDOMINAL PAIN [None]
  - PAIN [None]
  - HEADACHE [None]
  - DERMATITIS INFECTED [None]
